FAERS Safety Report 25933391 (Version 1)
Quarter: 2025Q4

REPORT INFORMATION
  Report Type: Spontaneous
  Country: US (occurrence: US)
  Receive Date: 20251017
  Receipt Date: 20251017
  Transmission Date: 20260118
  Serious: Yes (Other)
  Sender: HETERO
  Company Number: US-HETERO-HET2025US06108

PATIENT

DRUGS (3)
  1. LITHIUM [Suspect]
     Active Substance: LITHIUM
     Indication: Mental disorder
     Dosage: UNK
     Route: 065
     Dates: start: 2013
  2. RISPERIDONE [Suspect]
     Active Substance: RISPERIDONE
     Indication: Mental disability
     Dosage: UNK
     Route: 065
     Dates: start: 2013
  3. QUETIAPINE [Suspect]
     Active Substance: QUETIAPINE
     Indication: Mental disorder
     Dosage: UNK
     Route: 065
     Dates: start: 2013

REACTIONS (1)
  - Adverse event [Unknown]
